FAERS Safety Report 4803525-X (Version None)
Quarter: 2005Q4

REPORT INFORMATION
  Report Type: 
  Country: None (occurrence: None)
  Receive Date: 20051014
  Receipt Date: 30051003
  Transmission Date: 20060501
  Serious: Yes (Hospitalization)
  Sender: FDA-Public Use
  Company Number: 2005137993

PATIENT
  Age: 89 Year
  Sex: Male
  Weight: 70 kg

DRUGS (8)
  1. XANAX [Suspect]
     Indication: ILL-DEFINED DISORDER
     Dosage: 0.5 MG (0.25 MG, 1 IN 1 D), ORAL
     Route: 048
  2. AMLODIPINE [Suspect]
     Indication: ILL-DEFINED DISORDER
     Dosage: 10 MG (10 MG, 1 IN 1 D), ORAL
     Route: 048
  3. CITALOPRAM HYDROBROMIDE [Suspect]
     Indication: ILL-DEFINED DISORDER
     Dosage: 1 IN 1 D, ORAL
     Route: 048
  4. TIAPRIDAL                       (TIAPRIDE) [Suspect]
     Indication: ILL-DEFINED DISORDER
     Dosage: 30 DROP (1 IN 1 D), ORAL
     Route: 048
  5. PLAVIX [Concomitant]
  6. FUROSEMIDE [Concomitant]
  7. DISCOTRINE                           (GLYCERYL TRINITRATE) [Concomitant]
  8. MEDIATENSYL (URAPIDIL) [Concomitant]

REACTIONS (4)
  - BLOOD CREATININE INCREASED [None]
  - DYSKINESIA [None]
  - EPILEPSY [None]
  - TREMOR [None]
